FAERS Safety Report 7742716-5 (Version None)
Quarter: 2011Q3

REPORT INFORMATION
  Report Type: 
  Country: None (occurrence: None)
  Receive Date: 20110912
  Receipt Date: 20110906
  Transmission Date: 20111222
  Serious: Yes (Death)
  Sender: FDA-Public Use
  Company Number: US-JNJFOC-20110902934

PATIENT
  Age: 34 Year
  Sex: Female

DRUGS (2)
  1. TYLENOL-500 [Suspect]
     Indication: PAIN
     Dosage: TAKEN FOR 2-3 WEEKS OF UNKNOWN AMOUNTS
     Dates: start: 20100601
  2. TYLENOL-500 [Suspect]
     Indication: PYREXIA
     Dosage: TAKEN FOR 2-3 WEEKS OF UNKNOWN AMOUNTS
     Dates: start: 20100601

REACTIONS (1)
  - ACUTE HEPATIC FAILURE [None]
